FAERS Safety Report 9878288 (Version 3)
Quarter: 2014Q1

REPORT INFORMATION
  Report Type: Report from Study
  Country: US (occurrence: US)
  Receive Date: 20140206
  Receipt Date: 20140224
  Transmission Date: 20141002
  Serious: Yes (Hospitalization)
  Sender: FDA-Public Use
  Company Number: US-ACTELION-A-US2013-91695

PATIENT
  Age: 6 Year
  Sex: Female

DRUGS (7)
  1. TRACLEER [Suspect]
     Indication: PULMONARY ARTERIAL HYPERTENSION
     Dosage: UNK
     Route: 048
     Dates: start: 200810
  2. FLOLAN [Concomitant]
     Dosage: 54 NG/KG, PER MIN
     Route: 042
     Dates: start: 20081111
  3. SILDENAFIL [Concomitant]
  4. COUMADIN [Concomitant]
  5. DIGOXIN [Concomitant]
  6. LASIX [Concomitant]
  7. ZANTAC [Concomitant]

REACTIONS (5)
  - Otitis media [Recovered/Resolved]
  - Middle ear effusion [Recovered/Resolved]
  - Myringotomy [Recovered/Resolved]
  - Ear infection [Not Recovered/Not Resolved]
  - Sinusitis [Unknown]
